FAERS Safety Report 14314267 (Version 3)
Quarter: 2018Q1

REPORT INFORMATION
  Report Type: Spontaneous
  Country: US (occurrence: US)
  Receive Date: 20171221
  Receipt Date: 20180328
  Transmission Date: 20180509
  Serious: Yes (Other)
  Sender: FDA-Public Use
  Company Number: US-BAYER-2017-242452

PATIENT
  Age: 47 Year
  Sex: Female

DRUGS (2)
  1. MIRENA [Suspect]
     Active Substance: LEVONORGESTREL
     Indication: MENSTRUATION IRREGULAR
     Dosage: 20 MCG/24HR, CONT
     Route: 015
     Dates: start: 2012, end: 20171009
  2. MIRENA [Suspect]
     Active Substance: LEVONORGESTREL
     Indication: MENSTRUATION IRREGULAR

REACTIONS (2)
  - Device dislocation [None]
  - Complication of device removal [None]

NARRATIVE: CASE EVENT DATE: 20171009
